FAERS Safety Report 5332279-6 (Version None)
Quarter: 2007Q2

REPORT INFORMATION
  Report Type: 
  Country: None (occurrence: None)
  Receive Date: 20070523
  Receipt Date: 20070515
  Transmission Date: 20071010
  Serious: Yes (Other)
  Sender: FDA-Public Use
  Company Number: US-BAYER-200710512BWH

PATIENT
  Age: 46 Year
  Sex: Male
  Weight: 91 kg

DRUGS (2)
  1. AVELOX [Suspect]
     Indication: PLEURISY
     Dosage: TOTAL DAILY DOSE: 400 MG  UNIT DOSE: 400 MG
     Route: 048
     Dates: start: 20070203, end: 20070203
  2. ZANTAC [Concomitant]
     Indication: GASTROOESOPHAGEAL REFLUX DISEASE

REACTIONS (7)
  - ANXIETY [None]
  - ARTHRALGIA [None]
  - DYSPNOEA [None]
  - MALAISE [None]
  - PANIC ATTACK [None]
  - SKIN BURNING SENSATION [None]
  - THROAT TIGHTNESS [None]
